FAERS Safety Report 15465500 (Version 4)
Quarter: 2018Q4

REPORT INFORMATION
  Report Type: Report from Study
  Country: US (occurrence: US)
  Receive Date: 20181004
  Receipt Date: 20181224
  Transmission Date: 20190204
  Serious: Yes (Hospitalization, Other)
  Sender: FDA-Public Use
  Company Number: US-TAKEDA-2017TUS025311

PATIENT
  Sex: Female

DRUGS (3)
  1. PONATINIB [Suspect]
     Active Substance: PONATINIB
     Indication: CHRONIC MYELOID LEUKAEMIA
     Dosage: 45 MG, QD
     Route: 048
     Dates: start: 20170925
  2. PONATINIB [Suspect]
     Active Substance: PONATINIB
     Dosage: 15 MG, QD
     Route: 048
  3. PONATINIB [Suspect]
     Active Substance: PONATINIB
     Dosage: 30 MG, QD
     Route: 048

REACTIONS (11)
  - Constipation [Unknown]
  - Diarrhoea [Unknown]
  - Pancreatitis [Unknown]
  - Abdominal pain upper [Unknown]
  - Skin fissures [Unknown]
  - Dry skin [Unknown]
  - Cholelithiasis [Unknown]
  - Adverse drug reaction [Unknown]
  - Skin wrinkling [Unknown]
  - Skin toxicity [Unknown]
  - Skin exfoliation [Unknown]
